FAERS Safety Report 4966635-2 (Version None)
Quarter: 2006Q2

REPORT INFORMATION
  Report Type: 
  Country: None (occurrence: None)
  Receive Date: 20060407
  Receipt Date: 20060317
  Transmission Date: 20061013
  Serious: Yes (Hospitalization)
  Sender: FDA-Public Use
  Company Number: ZA-AVENTIS-200612704GDDC

PATIENT
  Age: 72 Year
  Sex: Male

DRUGS (8)
  1. TAXOTERE [Suspect]
     Indication: PROSTATE CANCER METASTATIC
     Dosage: DOSE: 70 MG
     Route: 042
     Dates: start: 20051209, end: 20060216
  2. CELESTONE TAB [Concomitant]
     Indication: PROPHYLAXIS
     Dosage: DOSE: 20 MG
     Route: 042
     Dates: start: 20060216, end: 20060216
  3. KYTRIL [Concomitant]
     Indication: PROPHYLAXIS
     Dosage: DOSE: 3 MG
     Route: 042
     Dates: start: 20060216, end: 20060216
  4. ZOMETA [Concomitant]
     Indication: METASTASES TO BONE
     Dosage: DOSE: 4 MG
     Route: 042
     Dates: start: 20050927
  5. DECADRON [Concomitant]
     Indication: PROPHYLAXIS
     Dosage: DOSE: 4 MG
     Route: 048
     Dates: start: 20060216, end: 20060218
  6. HEXARONE [Concomitant]
     Indication: CARDIAC FAILURE
     Dosage: DOSE: 1 TAB
     Route: 048
  7. SLOW-K [Concomitant]
     Indication: CARDIAC FAILURE
     Route: 048
  8. LASIX [Concomitant]
     Indication: CARDIAC FAILURE
     Dosage: DOSE: 20 MG
     Route: 048

REACTIONS (7)
  - ANAEMIA [None]
  - BLOOD CREATININE DECREASED [None]
  - FATIGUE [None]
  - HYPOALBUMINAEMIA [None]
  - LEUKOPENIA [None]
  - OEDEMA [None]
  - PALLOR [None]
